FAERS Safety Report 15718870 (Version 2)
Quarter: 2018Q4

REPORT INFORMATION
  Report Type: Other
  Country: BE (occurrence: BE)
  Receive Date: 20181213
  Receipt Date: 20181222
  Transmission Date: 20190205
  Serious: Yes (Death, Life-Threatening, Hospitalization, Disabling, Congenital Anomaly, Other)
  Sender: FDA-Public Use
  Company Number: BE-APOTEX-2018AP026530

PATIENT
  Age: 1 Day
  Sex: Female
  Weight: 2.2 kg

DRUGS (4)
  1. FELODIPINE. [Suspect]
     Active Substance: FELODIPINE
     Indication: PRODUCT USED FOR UNKNOWN INDICATION
     Dosage: DOSE AS USED: NOT PROVIDED
     Route: 064
  2. METOPROLOL. [Suspect]
     Active Substance: METOPROLOL
     Indication: PRODUCT USED FOR UNKNOWN INDICATION
     Dosage: DOSE AS USED: NOT PROVIDED
     Route: 064
  3. HYDROCHLOROTHIAZIDE. [Suspect]
     Active Substance: HYDROCHLOROTHIAZIDE
     Indication: PRODUCT USED FOR UNKNOWN INDICATION
     Dosage: 12.550 MG, UNK (ONCE A DAY)
     Route: 064
  4. LOSARTAN POTASSIUM. [Suspect]
     Active Substance: LOSARTAN POTASSIUM
     Indication: PRODUCT USED FOR UNKNOWN INDICATION
     Dosage: UNK UNK, 12.5/50,QD, (ONCE A DAY)
     Route: 064

REACTIONS (23)
  - Capillary disorder [Fatal]
  - Ultrasound kidney abnormal [Fatal]
  - Foetal exposure timing unspecified [Fatal]
  - Oligohydramnios [Unknown]
  - Potter^s syndrome [Fatal]
  - Cardiovascular disorder [Fatal]
  - Foetal growth restriction [Fatal]
  - Atrial septal defect [Fatal]
  - Limb malformation [Fatal]
  - Congenital anomaly [Fatal]
  - Renal tubular disorder [Fatal]
  - Anuria [Fatal]
  - Neonatal anuria [Fatal]
  - Neonatal respiratory distress [Fatal]
  - Exposure during pregnancy [Fatal]
  - Lung disorder [Fatal]
  - Neonatal respiratory distress syndrome [Unknown]
  - Pulmonary hypertension [Fatal]
  - Pneumothorax [Fatal]
  - Patent ductus arteriosus [Fatal]
  - Premature baby [Not Recovered/Not Resolved]
  - Neonatal respiratory failure [Fatal]
  - Renal disorder [Fatal]
